FAERS Safety Report 13023183 (Version 1)
Quarter: 2016Q4

REPORT INFORMATION
  Report Type: Spontaneous
  Country: FR (occurrence: FR)
  Receive Date: 20161213
  Receipt Date: 20161213
  Transmission Date: 20170207
  Serious: Yes (Death, Life-Threatening, Hospitalization)
  Sender: FDA-Public Use
  Company Number: FR-SA-2016SA225987

PATIENT
  Age: 81 Year
  Sex: Male

DRUGS (2)
  1. PLAVIX [Suspect]
     Active Substance: CLOPIDOGREL BISULFATE
     Route: 048
     Dates: end: 20141006
  2. PREVISCAN [Interacting]
     Active Substance: FLUINDIONE
     Route: 048
     Dates: end: 20141006

REACTIONS (4)
  - Subdural haematoma [Fatal]
  - International normalised ratio increased [Recovered/Resolved]
  - Drug interaction [Unknown]
  - Cerebral haemorrhage [Fatal]

NARRATIVE: CASE EVENT DATE: 20141006
